FAERS Safety Report 10086942 (Version 2)
Quarter: 2014Q2

REPORT INFORMATION
  Report Type: Report from Study
  Country: AU (occurrence: AU)
  Receive Date: 20140418
  Receipt Date: 20140418
  Transmission Date: 20141212
  Serious: Yes (Hospitalization)
  Sender: FDA-Public Use
  Company Number: PHHY2014AU044038

PATIENT
  Age: 83 Year
  Sex: Female

DRUGS (1)
  1. ACLASTA [Suspect]
     Dosage: 5 MG/100ML
     Route: 042
     Dates: start: 20140408

REACTIONS (5)
  - Pain [Unknown]
  - Pyrexia [Recovering/Resolving]
  - Muscular weakness [Recovering/Resolving]
  - Cystitis [Recovering/Resolving]
  - Dysstasia [Unknown]
